FAERS Safety Report 7434554-8 (Version None)
Quarter: 2011Q2

REPORT INFORMATION
  Report Type: 
  Country: None (occurrence: None)
  Receive Date: 20110425
  Receipt Date: 20110419
  Transmission Date: 20111010
  Serious: No
  Sender: FDA-Public Use
  Company Number: US-B.I. PHARMACEUTICALS,INC./RIDGEFIELD-2011-BP-05699BP

PATIENT
  Age: 80 Year
  Sex: Male

DRUGS (8)
  1. PRADAXA [Suspect]
     Indication: ATRIAL FIBRILLATION
     Dosage: 300 MG
     Route: 048
     Dates: start: 20110201
  2. FUROSEMIDE [Concomitant]
     Dosage: 40 MG
     Dates: start: 20101126
  3. PRADAXA [Suspect]
     Indication: CEREBROVASCULAR ACCIDENT PROPHYLAXIS
  4. POTASSIUM CL [Concomitant]
     Dosage: 20 MEQ
     Dates: start: 20101126
  5. ASPIRIN [Concomitant]
     Dosage: 81 MG
     Dates: start: 20110128
  6. PRADAXA [Suspect]
     Indication: ANTICOAGULANT THERAPY
  7. BUPROPION HCL [Concomitant]
     Dosage: 100 MG
     Dates: start: 20110128
  8. SIMVASTATIN [Concomitant]
     Dosage: 40 MG

REACTIONS (6)
  - MUSCULAR WEAKNESS [None]
  - PAIN IN EXTREMITY [None]
  - VEIN DISORDER [None]
  - PARAESTHESIA [None]
  - OEDEMA PERIPHERAL [None]
  - MUSCULOSKELETAL STIFFNESS [None]
